FAERS Safety Report 4719756-3 (Version None)
Quarter: 2005Q3

REPORT INFORMATION
  Report Type: 
  Country: None (occurrence: None)
  Receive Date: 20050721
  Receipt Date: 20040713
  Transmission Date: 20060218
  Serious: Yes (Hospitalization)
  Sender: FDA-Public Use
  Company Number: US-GLAXOSMITHKLINE-A0518710A

PATIENT
  Age: 43 Year
  Sex: Male

DRUGS (6)
  1. AVANDIA [Suspect]
     Dosage: 4MG TWICE PER DAY
     Route: 048
     Dates: end: 20010423
  2. HUMULIN 70/30 [Concomitant]
     Dosage: 30UNIT IN THE MORNING
     Route: 058
  3. PRAVACHOL [Concomitant]
     Dosage: 40MG AT NIGHT
     Route: 048
     Dates: start: 20000707, end: 20010314
  4. ACCUPRIL [Concomitant]
     Dosage: 40MG TWICE PER DAY
     Dates: start: 20000707, end: 20010314
  5. GLUCOPHAGE [Concomitant]
     Dosage: 850MG TWICE PER DAY
     Route: 048
     Dates: start: 20000707, end: 20010314
  6. NORCO [Concomitant]
     Indication: PAIN
     Route: 048

REACTIONS (1)
  - CARDIAC FAILURE CONGESTIVE [None]
